FAERS Safety Report 5511782-X (Version None)
Quarter: 2007Q4

REPORT INFORMATION
  Report Type: 
  Country: None (occurrence: None)
  Receive Date: 20071109
  Receipt Date: 20071030
  Transmission Date: 20080405
  Serious: Yes (Other)
  Sender: FDA-Public Use
  Company Number: JP-PFIZER INC-2007089049

PATIENT
  Age: 11 Year
  Sex: Male

DRUGS (3)
  1. NORVASC [Suspect]
     Dosage: DAILY DOSE:5MG
     Route: 048
  2. VALPROATE SODIUM [Concomitant]
  3. LISINOPRIL [Concomitant]

REACTIONS (1)
  - APLASIA PURE RED CELL [None]
